FAERS Safety Report 8389845-3 (Version None)
Quarter: 2012Q2

REPORT INFORMATION
  Report Type: 
  Country: None (occurrence: None)
  Receive Date: 20120522
  Receipt Date: 20120510
  Transmission Date: 20120825
  Serious: Yes (Hospitalization)
  Sender: FDA-Public Use
  Company Number: 2012SP025265

PATIENT
  Age: 54 Year
  Sex: Male

DRUGS (4)
  1. REMERON [Suspect]
     Indication: PRODUCT USED FOR UNKNOWN INDICATION
     Dosage: 80 DF;ONCE;PO
     Route: 048
     Dates: start: 20120301, end: 20120301
  2. LORAZEPAM [Suspect]
     Indication: PRODUCT USED FOR UNKNOWN INDICATION
     Dosage: ONCE;PO
     Route: 048
     Dates: start: 20120301, end: 20120301
  3. ZOLPIDEM [Suspect]
     Indication: PRODUCT USED FOR UNKNOWN INDICATION
     Dosage: 10 DF;ONCE;PO
     Route: 048
     Dates: start: 20120301, end: 20120301
  4. VENLAFAXINE [Suspect]
     Indication: PRODUCT USED FOR UNKNOWN INDICATION
     Dosage: 10 DF;ONCE;PO
     Route: 048
     Dates: start: 20120301, end: 20120301

REACTIONS (7)
  - POISONING [None]
  - AGITATION [None]
  - CONFUSIONAL STATE [None]
  - SUICIDE ATTEMPT [None]
  - COMA [None]
  - DELIRIUM [None]
  - MULTIPLE DRUG OVERDOSE INTENTIONAL [None]
